FAERS Safety Report 5934355-3 (Version None)
Quarter: 2008Q4

REPORT INFORMATION
  Report Type: 
  Country: None (occurrence: None)
  Receive Date: 20081029
  Receipt Date: 20081021
  Transmission Date: 20090506
  Serious: Yes (Other)
  Sender: FDA-Public Use
  Company Number: PHEH2008US09476

PATIENT
  Sex: Male

DRUGS (6)
  1. EXJADE [Suspect]
  2. ARANESP [Suspect]
     Indication: RENAL FAILURE CHRONIC
     Dosage: 300 UG, UNK
     Route: 058
  3. ARANESP [Suspect]
     Dosage: 300 MCG EVERY 3 WEEKS
     Dates: start: 20080701
  4. PROCRIT [Suspect]
     Indication: RENAL FAILURE CHRONIC
     Dosage: DOSE SCALATIONS UP TO 60000 IU 1 IN 1WEEKS
     Route: 058
     Dates: end: 20080701
  5. ERGOCALCIFEROL [Concomitant]
  6. TYLENOL (CAPLET) [Concomitant]

REACTIONS (3)
  - HAEMOGLOBIN DECREASED [None]
  - NONSPECIFIC REACTION [None]
  - OSTEOMYELITIS [None]
